FAERS Safety Report 13850477 (Version 1)
Quarter: 2017Q3

REPORT INFORMATION
  Report Type: Spontaneous
  Country: US (occurrence: US)
  Receive Date: 20170809
  Receipt Date: 20170809
  Transmission Date: 20171127
  Serious: Yes (Other)
  Sender: FDA-Public Use
  Company Number: US-APOTEX-2017AP016443

PATIENT
  Age: 47 Year
  Sex: Female

DRUGS (1)
  1. IMATINIB MESYLATE TABLETS [Suspect]
     Active Substance: IMATINIB MESYLATE
     Indication: DESMOID TUMOUR
     Dosage: UNK
     Route: 065

REACTIONS (4)
  - Osteonecrosis [Recovered/Resolved]
  - Toxicity to various agents [Recovered/Resolved]
  - Dermatitis [Recovered/Resolved]
  - Nausea [Recovered/Resolved]
